FAERS Safety Report 6477825-4 (Version None)
Quarter: 2009Q4

REPORT INFORMATION
  Report Type: 
  Country: None (occurrence: None)
  Receive Date: 20091207
  Receipt Date: 20091202
  Transmission Date: 20100525
  Serious: Yes (Other)
  Sender: FDA-Public Use
  Company Number: US-ABBOTT-09P-163-0611826-00

PATIENT
  Age: 41 Year
  Sex: Female

DRUGS (4)
  1. NORVIR [Suspect]
     Indication: ANTIVIRAL TREATMENT
     Dates: start: 20091016
  2. REYATAZ [Suspect]
     Indication: ANTIVIRAL TREATMENT
     Route: 048
     Dates: start: 20091016
  3. EMTRICITABINE AND TENOFOVIR DISOPROXIL FUMARATE [Suspect]
     Indication: ANTIVIRAL TREATMENT
     Route: 048
     Dates: start: 20091016
  4. ATRIPLA [Suspect]
     Indication: ANTIVIRAL TREATMENT
     Route: 048
     Dates: end: 20091016

REACTIONS (1)
  - ABORTION SPONTANEOUS [None]
